FAERS Safety Report 8009556-3 (Version None)
Quarter: 2011Q4

REPORT INFORMATION
  Report Type: 
  Country: None (occurrence: None)
  Receive Date: 20111227
  Receipt Date: 20111208
  Transmission Date: 20120403
  Serious: Yes (Hospitalization)
  Sender: FDA-Public Use
  Company Number: PHHY2011US39327

PATIENT
  Sex: Male

DRUGS (2)
  1. TRILEPTAL [Suspect]
     Indication: EPILEPSY
     Dosage: UNK
     Route: 048
  2. TOPAMAX [Concomitant]
     Dosage: 4 DF, BID

REACTIONS (6)
  - CONVULSION [None]
  - VOMITING PROJECTILE [None]
  - APNOEA [None]
  - MALAISE [None]
  - PETIT MAL EPILEPSY [None]
  - VOMITING [None]
